FAERS Safety Report 5205970-X (Version None)
Quarter: 2007Q1

REPORT INFORMATION
  Report Type: 
  Country: None (occurrence: None)
  Receive Date: 20070111
  Receipt Date: 20061229
  Transmission Date: 20070707
  Serious: Yes (Other)
  Sender: FDA-Public Use
  Company Number: GB-JNJFOC-20070101530

PATIENT
  Sex: Female

DRUGS (4)
  1. IBUPROFEN [Suspect]
     Indication: DRUG USE FOR UNKNOWN INDICATION
     Dosage: UNKNOWN
     Route: 048
  2. PAROXETINE HYDROCHLORIDE [Suspect]
     Indication: DEPRESSION
     Dosage: INITIAL DOSE DECREASED TO 1/4 TABLET (DATES/STRENGTH UNK), THEN INCREASED TO 30MG DAILY (DATE UNK)
  3. SERTALINE [Concomitant]
  4. SULPIRIDE [Concomitant]

REACTIONS (8)
  - ANXIETY [None]
  - DRUG WITHDRAWAL SYNDROME [None]
  - DRY MOUTH [None]
  - FEELING ABNORMAL [None]
  - HYPERHIDROSIS [None]
  - OVERDOSE [None]
  - PRURITUS [None]
  - SUICIDAL IDEATION [None]
